FAERS Safety Report 8494117-2 (Version None)
Quarter: 2012Q2

REPORT INFORMATION
  Report Type: 
  Country: None (occurrence: None)
  Receive Date: 20120628
  Receipt Date: 20120621
  Transmission Date: 20120825
  Serious: Yes (Other)
  Sender: FDA-Public Use
  Company Number: 2012SP006128

PATIENT
  Age: 86 Year
  Sex: Female
  Weight: 65.318 kg

DRUGS (2)
  1. NEXIUM [Concomitant]
  2. CLARITIN [Suspect]
     Indication: PRODUCT USED FOR UNKNOWN INDICATION
     Dosage: ONCE; PO
     Route: 048

REACTIONS (1)
  - EYE DISORDER [None]
